FAERS Safety Report 8715162 (Version 2)
Quarter: 2012Q4

REPORT INFORMATION
  Report Type: 
  Country: US (occurrence: US)
  Receive Date: 20120809
  Receipt Date: 20120907
  Transmission Date: 20130627
  Serious: Yes (Hospitalization)
  Sender: FDA-Public Use
  Company Number: US-PFIZER INC-2012189281

PATIENT
  Age: 84 Year
  Sex: Female
  Weight: 33.11 kg

DRUGS (2)
  1. REVATIO [Suspect]
     Indication: CHRONIC OBSTRUCTIVE PULMONARY DISEASE
     Dosage: 20 mg, 3x/day
     Dates: start: 20100917, end: 20120530
  2. REVATIO [Suspect]
     Dosage: 20 mg, 3x/day

REACTIONS (3)
  - Gastrointestinal disorder [Recovering/Resolving]
  - Pain [Recovering/Resolving]
  - Underweight [Unknown]
